FAERS Safety Report 10069844 (Version 1)
Quarter: 2014Q2

REPORT INFORMATION
  Report Type: Spontaneous
  Country: US (occurrence: US)
  Receive Date: 20140410
  Receipt Date: 20140410
  Transmission Date: 20141212
  Serious: No
  Sender: FDA-Public Use
  Company Number: US-PFIZER INC-2014100727

PATIENT
  Age: 46 Year
  Sex: Female
  Weight: 46.26 kg

DRUGS (2)
  1. DILANTIN-125 [Suspect]
     Indication: EPILEPSY
     Dosage: 300 MG, DAILY
  2. ATIVAN [Concomitant]
     Indication: ANXIETY DISORDER
     Dosage: 1 MG, DAILY

REACTIONS (2)
  - Drug ineffective [Unknown]
  - Anticonvulsant drug level decreased [Unknown]
